FAERS Safety Report 24937501 (Version 2)
Quarter: 2025Q1

REPORT INFORMATION
  Report Type: Spontaneous
  Country: PT (occurrence: PT)
  Receive Date: 20250206
  Receipt Date: 20250212
  Transmission Date: 20250409
  Serious: Yes (Hospitalization, Other)
  Sender: MYLAN
  Company Number: PT-ZENTIVA-2025-ZT-026766

PATIENT
  Age: 63 Year
  Sex: Male

DRUGS (2)
  1. METFORMIN [Suspect]
     Active Substance: METFORMIN HYDROCHLORIDE
     Indication: Product used for unknown indication
     Dosage: 1700 MILLIGRAM, QD, 1700 MG OF METFORMIN AND 10 MG OF DAPAGLIFLOZIN DAILY
     Route: 065
  2. DAPAGLIFLOZIN [Concomitant]
     Active Substance: DAPAGLIFLOZIN
     Dosage: 10 MILLIGRAM, QD, 1700 MG OF METFORMIN AND 10 MG OF DAPAGLIFLOZIN DAILY
     Route: 065

REACTIONS (6)
  - Lactic acidosis [Recovered/Resolved]
  - Mental status changes [Recovered/Resolved]
  - Dyspnoea [Recovered/Resolved]
  - Diabetic ketoacidosis [Recovered/Resolved]
  - Acetonaemia [Recovered/Resolved]
  - Contraindicated product administered [Recovered/Resolved]
